FAERS Safety Report 19834608 (Version 1)
Quarter: 2021Q3

REPORT INFORMATION
  Report Type: Spontaneous
  Country: IE (occurrence: IE)
  Receive Date: 20210915
  Receipt Date: 20210915
  Transmission Date: 20211014
  Serious: Yes (Disabling, Other)
  Sender: FDA-Public Use
  Company Number: IE-AMGEN-IRLSP2021141778

PATIENT
  Age: 66 Year
  Weight: 35 kg

DRUGS (1)
  1. DENOSUMAB [Suspect]
     Active Substance: DENOSUMAB
     Indication: OSTEOPOROSIS
     Dosage: 60MG 6?MONTHLY
     Route: 058
     Dates: end: 202009

REACTIONS (3)
  - Spinal fracture [Not Recovered/Not Resolved]
  - Rebound effect [Not Recovered/Not Resolved]
  - Product dose omission issue [Not Recovered/Not Resolved]

NARRATIVE: CASE EVENT DATE: 20201215
